FAERS Safety Report 10055474 (Version 2)
Quarter: 2020Q3

REPORT INFORMATION
  Report Type: Other
  Country: GB (occurrence: GB)
  Receive Date: 20140403
  Receipt Date: 20200902
  Transmission Date: 20201102
  Serious: Yes (Hospitalization, Other)
  Sender: FDA-Public Use
  Company Number: GB-LUPIN PHARMACEUTICALS INC.-E2B_00001870

PATIENT
  Age: 39 Year
  Sex: Male

DRUGS (6)
  1. METFORMIN [Suspect]
     Active Substance: METFORMIN HYDROCHLORIDE
     Indication: DIABETES MELLITUS
     Dosage: 1500 MILLIGRAM
     Route: 048
  2. AMISULPRIDE [Suspect]
     Active Substance: AMISULPRIDE
     Indication: SCHIZOPHRENIA
     Dosage: 50 MG,UNK,UNKNOWN
     Route: 048
  3. LAMOTRIGINE. [Suspect]
     Active Substance: LAMOTRIGINE
     Indication: EPILEPSY
     Dosage: 475 MG,UNK,UNKNOWN
     Route: 048
  4. CLOZARIL [Suspect]
     Active Substance: CLOZAPINE
     Dosage: 325 MG,QD,
     Route: 048
  5. SIMVASTATIN. [Suspect]
     Active Substance: SIMVASTATIN
     Indication: HYPERCHOLESTEROLAEMIA
     Dosage: 20 MG,UNK,UNKNOWN
     Route: 048
  6. CLOZARIL [Suspect]
     Active Substance: CLOZAPINE
     Indication: SCHIZOPHRENIA
     Dosage: UNK UNK,UNK,UNKNOWN
     Route: 048
     Dates: start: 20041129

REACTIONS (4)
  - Antipsychotic drug level decreased [Unknown]
  - Treatment noncompliance [Unknown]
  - Aggression [Unknown]
  - Schizophrenia [Recovering/Resolving]
